FAERS Safety Report 9865159 (Version 2)
Quarter: 2014Q1

REPORT INFORMATION
  Report Type: Spontaneous
  Country: US (occurrence: US)
  Receive Date: 20140203
  Receipt Date: 20140203
  Transmission Date: 20141002
  Serious: No
  Sender: FDA-Public Use
  Company Number: US-ALLERGAN-1303427US

PATIENT
  Age: 63 Year
  Sex: Female

DRUGS (2)
  1. RESTASIS [Suspect]
     Indication: DRY EYE
     Dosage: 2 GTT, BID
     Route: 047
     Dates: start: 2009
  2. MULTIVITAMIN                       /00097801/ [Concomitant]
     Indication: NUTRITIONAL SUPPLEMENTATION

REACTIONS (5)
  - Anosmia [Recovering/Resolving]
  - Nasal dryness [Not Recovered/Not Resolved]
  - Throat irritation [Not Recovered/Not Resolved]
  - Inappropriate schedule of drug administration [Unknown]
  - Eye irritation [Not Recovered/Not Resolved]
